FAERS Safety Report 7297133-1 (Version None)
Quarter: 2011Q1

REPORT INFORMATION
  Report Type: 
  Country: None (occurrence: None)
  Receive Date: 20110216
  Receipt Date: 20110211
  Transmission Date: 20110831
  Serious: No
  Sender: FDA-Public Use
  Company Number: US-PFIZER INC-2011033179

PATIENT
  Sex: Female

DRUGS (1)
  1. ADVIL PM [Suspect]

REACTIONS (1)
  - SLEEP DISORDER [None]
